FAERS Safety Report 16164757 (Version 1)
Quarter: 2019Q2

REPORT INFORMATION
  Report Type: Spontaneous
  Country: TW (occurrence: TW)
  Receive Date: 20190405
  Receipt Date: 20190405
  Transmission Date: 20190711
  Serious: Yes (Other)
  Sender: FDA-Public Use
  Company Number: TW-ASTRAZENECA-2019SE50164

PATIENT
  Age: 65 Year
  Sex: Male

DRUGS (1)
  1. IMFINZI [Suspect]
     Active Substance: DURVALUMAB
     Route: 042
     Dates: start: 20180416, end: 20180724

REACTIONS (3)
  - Abscess [Unknown]
  - Disease progression [Unknown]
  - Pyrexia [Unknown]

NARRATIVE: CASE EVENT DATE: 20180904
